FAERS Safety Report 19154477 (Version 1)
Quarter: 2021Q2

REPORT INFORMATION
  Report Type: Spontaneous
  Country: US (occurrence: US)
  Receive Date: 20210419
  Receipt Date: 20210419
  Transmission Date: 20210717
  Serious: Yes (Hospitalization)
  Sender: FDA-Public Use
  Company Number: US-PARI RESPIRATORY EQUIPMENT, INC.-2021PAR00024

PATIENT
  Age: 11 Year
  Sex: Female
  Weight: 35.37 kg

DRUGS (5)
  1. KITABIS PAK [Suspect]
     Active Substance: TOBRAMYCIN
     Indication: BACTERIAL INFECTION
     Dosage: 1 AMPULE (300 MG), 2X/DAY FOR 28 DAYS ON AND 28 DAYS OFF
  2. VALPROIC ACID. [Concomitant]
     Active Substance: VALPROIC ACID
  3. KITABIS PAK [Suspect]
     Active Substance: TOBRAMYCIN
     Indication: LUNG DISORDER
  4. VIMPAT [Concomitant]
     Active Substance: LACOSAMIDE
  5. LEVOCARNITINE. [Concomitant]
     Active Substance: LEVOCARNITINE

REACTIONS (2)
  - Hospitalisation [Recovered/Resolved]
  - Off label use [Unknown]

NARRATIVE: CASE EVENT DATE: 202102
